FAERS Safety Report 10103722 (Version 1)
Quarter: 2014Q2

REPORT INFORMATION
  Report Type: Report from Study
  Country: FR (occurrence: FR)
  Receive Date: 20140424
  Receipt Date: 20140424
  Transmission Date: 20141212
  Serious: Yes (Other)
  Sender: FDA-Public Use
  Company Number: FR-BAXTER-2014BAX020134

PATIENT
  Sex: 0

DRUGS (2)
  1. KIOVIG, 100 MG/ML, SOLUTION POUR PERFUSION [Suspect]
     Indication: TRANSPLANT REJECTION
     Route: 042
  2. KIOVIG, 100 MG/ML, SOLUTION POUR PERFUSION [Suspect]
     Indication: OFF LABEL USE

REACTIONS (1)
  - Graft loss [Unknown]
